FAERS Safety Report 9961500 (Version 3)
Quarter: 2014Q2

REPORT INFORMATION
  Report Type: Report from Study
  Country: IT (occurrence: IT)
  Receive Date: 20140305
  Receipt Date: 20140402
  Transmission Date: 20141212
  Serious: Yes (Hospitalization)
  Sender: FDA-Public Use
  Company Number: IT-CELGENEUS-083-50794-14020208

PATIENT
  Age: 79 Year
  Sex: Female

DRUGS (7)
  1. VIDAZA [Suspect]
     Indication: MYELODYSPLASTIC SYNDROME
     Route: 065
     Dates: start: 20131223
  2. REVLIMID [Suspect]
     Indication: MYELODYSPLASTIC SYNDROME
     Dosage: 10 MILLIGRAM
     Route: 048
     Dates: start: 20131228
  3. GABAPENTIN [Concomitant]
     Indication: VASCULITIS
     Route: 065
  4. RIOPAN [Concomitant]
     Indication: ABDOMINAL PAIN UPPER
     Route: 065
  5. ZANTAC [Concomitant]
     Indication: ABDOMINAL PAIN UPPER
     Route: 065
  6. CARDICOR [Concomitant]
     Indication: HYPERTENSION
     Route: 065
  7. CITALOPRAM [Concomitant]
     Indication: DEPRESSION
     Route: 065

REACTIONS (1)
  - Nausea [Not Recovered/Not Resolved]
